FAERS Safety Report 8441351-3 (Version None)
Quarter: 2012Q2

REPORT INFORMATION
  Report Type: 
  Country: None (occurrence: None)
  Receive Date: 20120615
  Receipt Date: 20120612
  Transmission Date: 20120825
  Serious: Yes (Death)
  Sender: FDA-Public Use
  Company Number: JP-BRISTOL-MYERS SQUIBB COMPANY-16372567

PATIENT
  Age: 71 Year
  Sex: Male
  Weight: 61 kg

DRUGS (8)
  1. FOLIAMIN [Concomitant]
     Route: 048
     Dates: end: 20111215
  2. ORENCIA [Suspect]
     Indication: RHEUMATOID ARTHRITIS
     Dosage: 2ND ADMINISTRATION
     Route: 041
     Dates: start: 20111128, end: 20111212
  3. RHEUMATREX [Suspect]
     Indication: RHEUMATOID ARTHRITIS
     Route: 048
     Dates: end: 20111213
  4. COTRIM [Concomitant]
     Dosage: 1DF=1 TAB
     Route: 048
     Dates: end: 20111212
  5. URSA [Concomitant]
     Route: 048
     Dates: end: 20111216
  6. RABEPRAZOLE SODIUM [Concomitant]
     Route: 048
     Dates: end: 20111215
  7. PREDNISOLONE [Suspect]
     Indication: RHEUMATOID ARTHRITIS
     Dosage: INTIALLY 10MG REDUCED TO 7MG, 6MG/DAY (4-0-2)
     Route: 048
     Dates: end: 20111216
  8. ALLOPURINOL [Concomitant]
     Route: 048
     Dates: end: 20111216

REACTIONS (1)
  - ACUTE MYOCARDIAL INFARCTION [None]
